FAERS Safety Report 21397750 (Version 1)
Quarter: 2022Q3

REPORT INFORMATION
  Report Type: Spontaneous
  Country: PT (occurrence: PT)
  Receive Date: 20220930
  Receipt Date: 20220930
  Transmission Date: 20221027
  Serious: Yes (Other)
  Sender: FDA-Public Use
  Company Number: None

PATIENT
  Age: 57 Year
  Sex: Female
  Weight: 43 kg

DRUGS (8)
  1. ARAVA [Interacting]
     Active Substance: LEFLUNOMIDE
     Dosage: 1 TABLET - DAILY
     Route: 048
     Dates: start: 20120112
  2. METHOTREXATE [Interacting]
     Active Substance: METHOTREXATE
     Dosage: 22.5 MILLIGRAMS - WEEKLY
     Route: 048
     Dates: start: 20220315
  3. ETANERCEPT [Interacting]
     Active Substance: ETANERCEPT
     Indication: Rheumatoid arthritis
     Dosage: 50MG 1 X WEEK
     Route: 058
     Dates: start: 20220315, end: 20220322
  4. PREDNISOLONE [Concomitant]
     Active Substance: PREDNISOLONE
     Dosage: 5 MILLIGRAMS - DAILY
     Dates: start: 20140626
  5. NEXIUM I.V. [Concomitant]
     Active Substance: ESOMEPRAZOLE SODIUM
     Dosage: 1 TABLET - DAILY
     Route: 048
     Dates: start: 20090615
  6. CALCIUM D SANDOZ [Concomitant]
     Dosage: 1 TABLET - DAILY
     Route: 048
     Dates: start: 20090615
  7. FOSAVANCE [Concomitant]
     Active Substance: ALENDRONATE SODIUM\CHOLECALCIFEROL
     Dosage: 1 TABLET - FORTNIGHTLY
     Route: 048
     Dates: start: 20120115
  8. FOLIC ACID [Concomitant]
     Active Substance: FOLIC ACID
     Dosage: 2 TABLETS - WEEKLY
     Route: 048
     Dates: start: 20090615

REACTIONS (5)
  - Drug interaction [Unknown]
  - Eczema [Recovered/Resolved]
  - Skin exfoliation [Recovered/Resolved]
  - Palpitations [Recovered/Resolved]
  - Oral discomfort [Recovering/Resolving]

NARRATIVE: CASE EVENT DATE: 20220317
